FAERS Safety Report 6754516-3 (Version None)
Quarter: 2010Q2

REPORT INFORMATION
  Report Type: 
  Country: None (occurrence: None)
  Receive Date: 20100603
  Receipt Date: 20100518
  Transmission Date: 20101027
  Serious: No
  Sender: FDA-Public Use
  Company Number: US-TYCO HEALTHCARE/MALLINCKRODT-T201001258

PATIENT

DRUGS (1)
  1. EXALGO [Suspect]
     Indication: DRUG USE FOR UNKNOWN INDICATION
     Dosage: TOOK 1 8MG TABLET

REACTIONS (3)
  - MALAISE [None]
  - PRODUCT ODOUR ABNORMAL [None]
  - VOMITING [None]
